FAERS Safety Report 4368023-9 (Version None)
Quarter: 2004Q2

REPORT INFORMATION
  Report Type: 
  Country: None (occurrence: None)
  Receive Date: 20040527
  Receipt Date: 20040405
  Transmission Date: 20050107
  Serious: No
  Sender: FDA-Public Use
  Company Number: 205834

PATIENT
  Age: 33 Year
  Sex: Male
  Weight: 68 kg

DRUGS (2)
  1. RAPTIVA [Suspect]
     Indication: PSORIASIS
     Dosage: 0.7ML.1MG/KG, 1/WEEK SUBCUTANEOUS
     Route: 058
     Dates: start: 20040329, end: 20040329
  2. RAPTIVA [Suspect]
     Indication: PSORIASIS
     Dosage: 0.7ML.1MG/KG, 1/WEEK SUBCUTANEOUS
     Route: 058
     Dates: start: 20040405, end: 20040412

REACTIONS (2)
  - HEADACHE [None]
  - PHOTOPHOBIA [None]
